FAERS Safety Report 4365471-8 (Version None)
Quarter: 2004Q2

REPORT INFORMATION
  Report Type: 
  Country: None (occurrence: None)
  Receive Date: 20040526
  Receipt Date: 20040519
  Transmission Date: 20050107
  Serious: Yes (Hospitalization)
  Sender: FDA-Public Use
  Company Number: CA-JNJFOC-20040200708

PATIENT
  Sex: Female
  Weight: 42 kg

DRUGS (21)
  1. GALANTAMINE [Suspect]
     Route: 049
     Dates: start: 20031008, end: 20040324
  2. GALANTAMINE [Suspect]
     Route: 049
     Dates: start: 20031008, end: 20040324
  3. LEVODOPA [Concomitant]
     Dosage: 100/25 1/2 TAB QHS
     Route: 049
  4. IMOVANE [Concomitant]
     Indication: INSOMNIA
     Dosage: 7.5MG-15MG
     Route: 049
  5. CALTRATE PLUS [Concomitant]
     Route: 049
  6. CALTRATE PLUS [Concomitant]
     Route: 049
  7. CALTRATE PLUS [Concomitant]
     Route: 049
  8. CALTRATE PLUS [Concomitant]
     Route: 049
  9. CALTRATE PLUS [Concomitant]
     Route: 049
  10. CALTRATE PLUS [Concomitant]
     Indication: OSTEOPOROSIS
     Route: 049
  11. MULTI-VITAMIN [Concomitant]
     Route: 049
  12. MULTI-VITAMIN [Concomitant]
     Route: 049
  13. MULTI-VITAMIN [Concomitant]
     Route: 049
  14. MULTI-VITAMIN [Concomitant]
     Route: 049
  15. MULTI-VITAMIN [Concomitant]
     Route: 049
  16. MULTI-VITAMIN [Concomitant]
     Route: 049
  17. MULTI-VITAMIN [Concomitant]
     Route: 049
  18. MULTI-VITAMIN [Concomitant]
     Route: 049
  19. ES TYLENOL [Concomitant]
     Indication: OSTEOARTHRITIS
     Dosage: BID-QID
     Route: 065
  20. FOSAMAX [Concomitant]
     Indication: OSTEOPOROSIS
     Route: 049
  21. ASPIRIN [Concomitant]
     Indication: HEADACHE
     Route: 049
     Dates: end: 20040130

REACTIONS (7)
  - AGITATION [None]
  - APHASIA [None]
  - DYSPHAGIA [None]
  - HAEMORRHAGE INTRACRANIAL [None]
  - HEMIANOPIA HOMONYMOUS [None]
  - RESTLESSNESS [None]
  - TACHYCARDIA [None]
